FAERS Safety Report 6115267-1 (Version None)
Quarter: 2009Q1

REPORT INFORMATION
  Report Type: 
  Country: None (occurrence: None)
  Receive Date: 20090313
  Receipt Date: 20090304
  Transmission Date: 20090719
  Serious: Yes (Other)
  Sender: FDA-Public Use
  Company Number: GB-MERCK-0903GBR00022

PATIENT
  Age: 60 Year
  Sex: Female

DRUGS (4)
  1. EMEND [Suspect]
     Indication: VOMITING
     Route: 048
  2. EMEND [Suspect]
     Route: 048
  3. EMEND [Suspect]
     Indication: NAUSEA
     Route: 048
  4. EMEND [Suspect]
     Route: 048

REACTIONS (1)
  - CEREBROVASCULAR ACCIDENT [None]
